FAERS Safety Report 5739588-7 (Version None)
Quarter: 2008Q2

REPORT INFORMATION
  Report Type: 
  Country: None (occurrence: None)
  Receive Date: 20080515
  Receipt Date: 20080507
  Transmission Date: 20081010
  Serious: Yes (Hospitalization)
  Sender: FDA-Public Use
  Company Number: NL-AMGEN-US263118

PATIENT
  Age: 45 Year
  Sex: Female

DRUGS (2)
  1. ENBREL [Suspect]
     Indication: DRUG USE FOR UNKNOWN INDICATION
     Dates: end: 20080124
  2. TEMAZEPAM [Concomitant]
     Indication: INSOMNIA
     Dosage: 10 MG USED INCIDENTALLY

REACTIONS (5)
  - FEELING ABNORMAL [None]
  - NAUSEA [None]
  - NECROTISING FASCIITIS STREPTOCOCCAL [None]
  - PRURITUS [None]
  - TREMOR [None]
